FAERS Safety Report 23386604 (Version 3)
Quarter: 2024Q1

REPORT INFORMATION
  Report Type: Spontaneous
  Country: US (occurrence: US)
  Receive Date: 20240110
  Receipt Date: 20240301
  Transmission Date: 20240409
  Serious: Yes (Other)
  Sender: FDA-Public Use
  Company Number: US-DRL-USA-SPO/USA/24/0000431

PATIENT
  Age: 18 Year

DRUGS (2)
  1. ACCUTANE [Suspect]
     Active Substance: ISOTRETINOIN
     Indication: Acne
     Dosage: BOX OF 30 (3 PACKS OF 10 CAPSULES)
     Route: 048
     Dates: start: 20231001
  2. ACCUTANE [Suspect]
     Active Substance: ISOTRETINOIN
     Dosage: BOX OF 30 (3 PACKS OF 10 CAPSULES)
     Route: 048
     Dates: start: 20231001

REACTIONS (4)
  - Acne fulminans [Unknown]
  - Epistaxis [Unknown]
  - Mood swings [Unknown]
  - Affect lability [Unknown]

NARRATIVE: CASE EVENT DATE: 20231101
